FAERS Safety Report 16874472 (Version 1)
Quarter: 2019Q4

REPORT INFORMATION
  Report Type: Spontaneous
  Country: US (occurrence: US)
  Receive Date: 20191001
  Receipt Date: 20191001
  Transmission Date: 20200122
  Serious: Yes (Other)
  Sender: FDA-Public Use
  Company Number: US-BAUSCH-BL-2019-055850

PATIENT
  Sex: Male

DRUGS (1)
  1. BUPROPION HCL ER [Suspect]
     Active Substance: BUPROPION HYDROCHLORIDE
     Indication: PRODUCT USED FOR UNKNOWN INDICATION
     Dosage: 24 HOURS SLAT
     Route: 065

REACTIONS (11)
  - Hypoacusis [Unknown]
  - Abnormal behaviour [Unknown]
  - Confusional state [Unknown]
  - Pollakiuria [Unknown]
  - Stevens-Johnson syndrome [Unknown]
  - Toxic epidermal necrolysis [Unknown]
  - Visual impairment [Unknown]
  - Lymphadenopathy [Unknown]
  - Flatulence [Unknown]
  - Decreased appetite [Unknown]
  - Dysphonia [Unknown]
